FAERS Safety Report 5563624-4 (Version None)
Quarter: 2007Q4

REPORT INFORMATION
  Report Type: 
  Country: None (occurrence: None)
  Receive Date: 20071217
  Receipt Date: 20071203
  Transmission Date: 20080405
  Serious: Yes (Hospitalization)
  Sender: FDA-Public Use
  Company Number: US-ELI_LILLY_AND_COMPANY-US200712000420

PATIENT
  Age: 70 Year
  Sex: Female

DRUGS (1)
  1. EVISTA [Suspect]
     Dates: start: 19970101, end: 20071024

REACTIONS (5)
  - BLOOD CALCIUM INCREASED [None]
  - HOT FLUSH [None]
  - MUSCLE SPASMS [None]
  - PARATHYROID GLAND ENLARGEMENT [None]
  - WEIGHT INCREASED [None]
